FAERS Safety Report 8509407-4 (Version None)
Quarter: 2012Q3

REPORT INFORMATION
  Report Type: 
  Country: None (occurrence: None)
  Receive Date: 20120713
  Receipt Date: 20120702
  Transmission Date: 20120928
  Serious: Yes (Life-Threatening, Hospitalization, Other)
  Sender: FDA-Public Use
  Company Number: US-FRI-1000030246

PATIENT
  Age: 78 Year
  Sex: Male
  Weight: 63.5 kg

DRUGS (4)
  1. ATENOLOL [Concomitant]
     Indication: HYPERTENSION
  2. VIIBRYD [Suspect]
     Indication: DEMENTIA
     Dosage: 10 MG
     Route: 048
     Dates: start: 20120312, end: 20120319
  3. VIIBRYD [Suspect]
     Dosage: 40 MG
     Dates: start: 20120328, end: 20120403
  4. VIIBRYD [Suspect]
     Dosage: 20 MG
     Dates: start: 20120320, end: 20120327

REACTIONS (9)
  - SUICIDAL IDEATION [None]
  - DEPRESSION [None]
  - NIGHTMARE [None]
  - SLEEP DISORDER [None]
  - OFF LABEL USE [None]
  - AGITATION [None]
  - SCREAMING [None]
  - ANXIETY [None]
  - PHOTOPHOBIA [None]
